FAERS Safety Report 24921884 (Version 1)
Quarter: 2025Q1

REPORT INFORMATION
  Report Type: Spontaneous
  Country: FR (occurrence: FR)
  Receive Date: 20250204
  Receipt Date: 20250204
  Transmission Date: 20250408
  Serious: Yes (Hospitalization, Other)
  Sender: ACCORD
  Company Number: None

PATIENT
  Age: 79 Year
  Sex: Female

DRUGS (7)
  1. DAPTOMYCIN [Suspect]
     Active Substance: DAPTOMYCIN
     Indication: Staphylococcal infection
  2. LINEZOLID [Suspect]
     Active Substance: LINEZOLID
     Indication: Antibiotic therapy
     Dates: start: 202105, end: 202108
  3. TEDIZOLID [Suspect]
     Active Substance: TEDIZOLID
     Indication: Vascular device infection
     Dates: start: 202109
  4. CEFAZOLIN [Suspect]
     Active Substance: CEFAZOLIN
     Indication: Vascular device infection
  5. RIFAMPIN [Suspect]
     Active Substance: RIFAMPIN
     Indication: Staphylococcal infection
     Dates: start: 202105, end: 20210810
  6. SIVEXTRO [Suspect]
     Active Substance: TEDIZOLID PHOSPHATE
     Indication: Vascular device infection
     Dates: start: 202109
  7. DAPTOMYCIN [Suspect]
     Active Substance: DAPTOMYCIN
     Indication: Antibiotic therapy
     Dates: start: 202105, end: 20210810

REACTIONS (6)
  - Blood creatinine increased [Unknown]
  - Pancytopenia [Unknown]
  - Fall [Unknown]
  - Gait disturbance [Unknown]
  - Blood creatinine abnormal [Unknown]
  - Glomerular filtration rate abnormal [Unknown]

NARRATIVE: CASE EVENT DATE: 20210101
